FAERS Safety Report 19079209 (Version 2)
Quarter: 2021Q3

REPORT INFORMATION
  Report Type: Spontaneous
  Country: US (occurrence: US)
  Receive Date: 20210331
  Receipt Date: 20210727
  Transmission Date: 20211014
  Serious: No
  Sender: FDA-Public Use
  Company Number: US-PFIZER INC-2021304515

PATIENT
  Age: 47 Year
  Sex: Female
  Weight: 70.31 kg

DRUGS (2)
  1. PREMPRO [Suspect]
     Active Substance: ESTROGENS, CONJUGATED\MEDROXYPROGESTERONE ACETATE
     Indication: HORMONE REPLACEMENT THERAPY
     Dosage: 0.45 MG /1.5 MG; 1 DF, 1X/DAY
  2. PREMPRO [Suspect]
     Active Substance: ESTROGENS, CONJUGATED\MEDROXYPROGESTERONE ACETATE
     Dosage: 0.3 MG/1.5 MG
     Dates: start: 202104

REACTIONS (7)
  - Product prescribing error [Unknown]
  - Drug ineffective [Unknown]
  - Therapeutic response unexpected [Unknown]
  - Hot flush [Unknown]
  - Incorrect dose administered [Unknown]
  - Product dispensing error [Unknown]
  - Anxiety [Unknown]

NARRATIVE: CASE EVENT DATE: 202104
